FAERS Safety Report 8817066 (Version 1)
Quarter: 2012Q4

REPORT INFORMATION
  Report Type: Spontaneous
  Country: US (occurrence: None)
  Receive Date: 20121003
  Receipt Date: 20121003
  Transmission Date: 20130627
  Serious: Yes (Hospitalization)
  Sender: FDA-Public Use
  Company Number: None

PATIENT
  Age: 60 Year
  Sex: Male

DRUGS (1)
  1. TEMODAR 250 SCHERING-PLOUGH [Suspect]
     Indication: MALIGNANT NEOPLASM OF BRAIN
     Dosage: 500MG DAILY PO
     Route: 048
     Dates: start: 20120127, end: 20120923

REACTIONS (1)
  - White blood cell count decreased [None]
